FAERS Safety Report 4881090-9 (Version None)
Quarter: 2005Q4

REPORT INFORMATION
  Report Type: 
  Country: None (occurrence: None)
  Receive Date: 20051223
  Receipt Date: 20050921
  Transmission Date: 20060501
  Serious: No
  Sender: FDA-Public Use
  Company Number: 05P-163-0311513-00

PATIENT
  Age: 59 Year
  Sex: Male
  Weight: 84.369 kg

DRUGS (13)
  1. HUMIRA [Suspect]
     Indication: RHEUMATOID ARTHRITIS
     Dosage: 40 MG, 1 IN 2 WK, SUBCUTANEOUS
     Route: 058
     Dates: start: 20040101, end: 20050831
  2. HUMIRA [Suspect]
     Indication: RHEUMATOID ARTHRITIS
     Dosage: 40 MG, 1 IN 2 WK, SUBCUTANEOUS
     Route: 058
     Dates: start: 20050919
  3. ATENOLOL [Concomitant]
  4. VICODIN [Concomitant]
  5. FUROSEMIDE [Concomitant]
  6. OMEPRAZOLE [Concomitant]
  7. LEVOTHYROXINE SODIUM [Concomitant]
  8. PREDNISONE [Concomitant]
  9. CITALOPRAM HYDROBROMIDE [Concomitant]
  10. FOLIC ACID [Concomitant]
  11. CALCIUM GLUCONATE [Concomitant]
  12. SOSOLATE [Concomitant]
  13. TRAZODONE [Concomitant]

REACTIONS (3)
  - LABORATORY TEST ABNORMAL [None]
  - SINUSITIS [None]
  - VITAMIN B12 DEFICIENCY [None]
